FAERS Safety Report 4367419-9 (Version None)
Quarter: 2004Q2

REPORT INFORMATION
  Report Type: 
  Country: None (occurrence: None)
  Receive Date: 20040528
  Receipt Date: 20040528
  Transmission Date: 20050107
  Serious: Yes (Life-Threatening)
  Sender: FDA-Public Use
  Company Number: None

PATIENT
  Sex: Female
  Weight: 55 kg

DRUGS (4)
  1. CYTOXAN [Suspect]
     Indication: LYMPHOMA
     Dosage: 1200 MG X 1 IV
     Route: 042
     Dates: start: 20040429
  2. CYTOXAN [Suspect]
     Dosage: 300 MG IV X 5
     Route: 042
     Dates: start: 20040429, end: 20040512
  3. DOXORUBICIN 68 MG DOSE [Suspect]
     Dosage: 68 MG X 1
     Dates: start: 20040428
  4. RUTUXIMAB [Concomitant]

REACTIONS (4)
  - ASTHMA [None]
  - ATRIAL TACHYCARDIA [None]
  - BRONCHOSPASM [None]
  - CONDITION AGGRAVATED [None]
